FAERS Safety Report 8497967 (Version 4)
Quarter: 2012Q4

REPORT INFORMATION
  Report Type: Report from Study
  Country: US (occurrence: US)
  Receive Date: 20120406
  Receipt Date: 20121016
  Transmission Date: 20130627
  Serious: Yes (Hospitalization, Other)
  Sender: FDA-Public Use
  Company Number: US-ABBOTT-12P-163-0909098-00

PATIENT
  Age: 18 None
  Sex: Female
  Weight: 61.29 kg

DRUGS (9)
  1. HUMIRA 40 MG/0.8 ML PEN [Suspect]
     Indication: CROHN^S DISEASE
     Dates: start: 201110
  2. HUMIRA 40 MG/0.8 ML PEN [Suspect]
     Dates: start: 201208
  3. ASACOL [Concomitant]
     Indication: CROHN^S DISEASE
     Dates: end: 201202
  4. UNKNOWN SUPPLEMENTS [Concomitant]
     Indication: SUPPLEMENTATION THERAPY
  5. IRON [Concomitant]
     Indication: PRODUCT USED FOR UNKNOWN INDICATION
  6. ZINC [Concomitant]
     Indication: PRODUCT USED FOR UNKNOWN INDICATION
  7. FAMOTIDINE [Concomitant]
     Indication: PRODUCT USED FOR UNKNOWN INDICATION
  8. CALCIUM [Concomitant]
     Indication: PRODUCT USED FOR UNKNOWN INDICATION
  9. FISH OIL [Concomitant]
     Indication: PRODUCT USED FOR UNKNOWN INDICATION

REACTIONS (13)
  - Ileitis [Recovered/Resolved]
  - Drug ineffective [Not Recovered/Not Resolved]
  - Large intestine polyp [Recovered/Resolved]
  - Gastrointestinal inflammation [Recovered/Resolved]
  - Gastrointestinal erosion [Recovered/Resolved]
  - Colitis [Recovered/Resolved]
  - Excessive granulation tissue [Recovered/Resolved]
  - Fibrin abnormal [Recovered/Resolved]
  - Intestinal ulcer [Recovered/Resolved]
  - Inflammation [Recovered/Resolved]
  - Proctitis [Recovered/Resolved]
  - Sigmoiditis [Recovered/Resolved]
  - Pelvic fluid collection [Recovered/Resolved]
